FAERS Safety Report 7227069-3 (Version None)
Quarter: 2011Q1

REPORT INFORMATION
  Report Type: 
  Country: None (occurrence: None)
  Receive Date: 20110111
  Receipt Date: 20110111
  Transmission Date: 20110831
  Serious: Yes (Hospitalization)
  Sender: FDA-Public Use
  Company Number: None

PATIENT
  Age: 52 Year
  Sex: Female
  Weight: 56.6996 kg

DRUGS (4)
  1. NITROFURANTOIN [Suspect]
     Indication: URINARY TRACT INFECTION
     Dosage: 100 MG 1 PER DAY O47
     Route: 048
     Dates: start: 20101214
  2. NITROFURANTOIN [Suspect]
     Indication: URINARY TRACT INFECTION
     Dosage: 100 MG 1 PER DAY O47
     Route: 048
     Dates: start: 20101028, end: 20101116
  3. MEDS FOR HIGH TRIGLYCERIDES [Concomitant]
  4. MEDS FOR HIGH BLOOD PRESSURE [Concomitant]

REACTIONS (14)
  - PAIN [None]
  - LOSS OF CONSCIOUSNESS [None]
  - DYSPNOEA [None]
  - DEHYDRATION [None]
  - MALAISE [None]
  - PYREXIA [None]
  - DRUG HYPERSENSITIVITY [None]
  - ASTHENIA [None]
  - PNEUMONIA VIRAL [None]
  - DIZZINESS [None]
  - HEART RATE INCREASED [None]
  - CHILLS [None]
  - HYPOTENSION [None]
  - IMPAIRED WORK ABILITY [None]
